FAERS Safety Report 9829985 (Version 1)
Quarter: 2014Q1

REPORT INFORMATION
  Report Type: Spontaneous
  Country: JP (occurrence: JP)
  Receive Date: 20140120
  Receipt Date: 20140120
  Transmission Date: 20141002
  Serious: Yes (Hospitalization)
  Sender: FDA-Public Use
  Company Number: JP-ELI_LILLY_AND_COMPANY-JP201401002345

PATIENT
  Age: 46 Year
  Sex: Female

DRUGS (2)
  1. ZYPREXA [Suspect]
     Indication: SCHIZOPHRENIA
     Dosage: UNK
     Route: 048
  2. LITHIUM CARBONATE [Suspect]
     Indication: SCHIZOPHRENIA
     Dosage: UNK
     Route: 048

REACTIONS (3)
  - Nephrogenic diabetes insipidus [Recovering/Resolving]
  - Urinary retention [Recovering/Resolving]
  - Abdominal mass [Unknown]
